FAERS Safety Report 7376862-5 (Version None)
Quarter: 2011Q1

REPORT INFORMATION
  Report Type: 
  Country: None (occurrence: None)
  Receive Date: 20110326
  Receipt Date: 20110317
  Transmission Date: 20110831
  Serious: Yes (Other)
  Sender: FDA-Public Use
  Company Number: PHHY2010BR70470

PATIENT
  Sex: Female

DRUGS (2)
  1. DIOVAN [Suspect]
     Dosage: 320 MG
     Route: 048
  2. DIOVAN [Suspect]
     Dosage: 320 MG, UNK
     Route: 048

REACTIONS (1)
  - CARDIAC PACEMAKER INSERTION [None]
